FAERS Safety Report 26077887 (Version 1)
Quarter: 2025Q4

REPORT INFORMATION
  Report Type: Spontaneous
  Country: US (occurrence: US)
  Receive Date: 20251122
  Receipt Date: 20251122
  Transmission Date: 20260117
  Serious: No
  Sender: MDD OPERATIONS
  Company Number: US-MDD US Operations-MDD202509-003784

PATIENT
  Age: 66 Year
  Sex: Male

DRUGS (1)
  1. ONAPGO [Suspect]
     Active Substance: APOMORPHINE HYDROCHLORIDE
     Indication: Parkinson^s disease
     Dosage: 1.5MG PER HOUR
     Dates: start: 20250915

REACTIONS (3)
  - Disturbance in sexual arousal [Recovering/Resolving]
  - Fatigue [Recovering/Resolving]
  - Insomnia [Recovering/Resolving]
